FAERS Safety Report 22037678 (Version 2)
Quarter: 2023Q1

REPORT INFORMATION
  Report Type: Spontaneous
  Country: US (occurrence: US)
  Receive Date: 20230227
  Receipt Date: 20230315
  Transmission Date: 20230418
  Serious: No
  Sender: FDA-Public Use
  Company Number: US-GLAXOSMITHKLINE-US2023028674

PATIENT
  Sex: Female

DRUGS (1)
  1. ZEJULA [Suspect]
     Active Substance: NIRAPARIB
     Indication: Ovarian cancer
     Dosage: 200 MG, QD
     Dates: start: 20230208, end: 20230303

REACTIONS (8)
  - Nausea [Unknown]
  - Decreased appetite [Unknown]
  - Gingival pain [Unknown]
  - Gingival swelling [Unknown]
  - Laboratory test abnormal [Unknown]
  - Platelet count decreased [Unknown]
  - Contusion [Unknown]
  - Heart rate increased [Unknown]
